FAERS Safety Report 26155388 (Version 1)
Quarter: 2025Q4

REPORT INFORMATION
  Report Type: Spontaneous
  Country: US (occurrence: US)
  Receive Date: 20251215
  Receipt Date: 20251215
  Transmission Date: 20260118
  Serious: Yes (Hospitalization)
  Sender: AAVIS PHARMACEUTICALS
  Company Number: US-AVS-000284

PATIENT
  Age: 29 Year
  Sex: Female

DRUGS (3)
  1. RISPERIDONE [Suspect]
     Active Substance: RISPERIDONE
     Indication: Schizoaffective disorder bipolar type
     Route: 048
  2. NICOTINE [Concomitant]
     Active Substance: NICOTINE
     Indication: Schizoaffective disorder bipolar type
     Route: 065
  3. NICOTINE [Concomitant]
     Active Substance: NICOTINE
     Indication: Schizoaffective disorder bipolar type
     Route: 048

REACTIONS (1)
  - Oxygen saturation decreased [Not Recovered/Not Resolved]
